FAERS Safety Report 17584262 (Version 3)
Quarter: 2020Q2

REPORT INFORMATION
  Report Type: Spontaneous
  Country: BR (occurrence: BR)
  Receive Date: 20200326
  Receipt Date: 20200424
  Transmission Date: 20200713
  Serious: Yes (Other)
  Sender: FDA-Public Use
  Company Number: BR-NOVOPROD-719363

PATIENT
  Age: 61 Year
  Sex: Female

DRUGS (3)
  1. ESTRADIOL;TESTOSTERONE [Concomitant]
     Indication: HORMONE THERAPY
     Dosage: LOW DOSES
     Route: 058
     Dates: start: 201908
  2. SAXENDA [Suspect]
     Active Substance: LIRAGLUTIDE
     Indication: OBESITY
     Dosage: 3 MG, QD
     Route: 065
     Dates: start: 20190901, end: 20191001
  3. SAXENDA [Suspect]
     Active Substance: LIRAGLUTIDE
     Dosage: SMALL DOSE
     Route: 065
     Dates: start: 201910, end: 201910

REACTIONS (1)
  - Breast cancer [Not Recovered/Not Resolved]

NARRATIVE: CASE EVENT DATE: 20190901
